FAERS Safety Report 6849423-1 (Version None)
Quarter: 2010Q3

REPORT INFORMATION
  Report Type: 
  Country: None (occurrence: None)
  Receive Date: 20100716
  Receipt Date: 20071126
  Transmission Date: 20110219
  Serious: No
  Sender: FDA-Public Use
  Company Number: US-PFIZER INC-2007082935

PATIENT
  Sex: Female
  Weight: 74.1 kg

DRUGS (2)
  1. CHANTIX [Suspect]
     Indication: SMOKING CESSATION THERAPY
     Route: 048
     Dates: start: 20070920, end: 20070926
  2. VITAMINS [Concomitant]

REACTIONS (3)
  - DEPRESSION [None]
  - MALAISE [None]
  - NASOPHARYNGITIS [None]
